FAERS Safety Report 25453672 (Version 1)
Quarter: 2025Q2

REPORT INFORMATION
  Report Type: Spontaneous
  Country: US (occurrence: US)
  Receive Date: 20250619
  Receipt Date: 20250619
  Transmission Date: 20250717
  Serious: No
  Sender: TEVA
  Company Number: US-TEVA-VS-3342364

PATIENT
  Age: 44 Year
  Sex: Female

DRUGS (1)
  1. UZEDY [Suspect]
     Active Substance: RISPERIDONE
     Indication: Schizophrenia
     Dosage: DOSE FORM: INJECTABLE SUSPENSION, STRENGTH: 75/0.21MG/ML
     Route: 065
     Dates: start: 202410

REACTIONS (3)
  - Injection site irritation [Unknown]
  - Injection site reaction [Unknown]
  - Off label use [Unknown]
